FAERS Safety Report 11629230 (Version 1)
Quarter: 2015Q4

REPORT INFORMATION
  Report Type: Spontaneous
  Country: US (occurrence: None)
  Receive Date: 20151013
  Receipt Date: 20151013
  Transmission Date: 20160304
  Serious: No
  Sender: FDA-Public Use
  Company Number: None

PATIENT
  Age: 47 Year
  Sex: Female
  Weight: 113.4 kg

DRUGS (5)
  1. CELEBREX [Concomitant]
     Active Substance: CELECOXIB
  2. LEVOFLOXACIN 500 MG [Suspect]
     Active Substance: LEVOFLOXACIN
     Indication: PNEUMONIA
     Dosage: 1 PILL DAILY X 10 DAYS ONCE DAILY TAKEN BY MOUTH
     Route: 048
     Dates: start: 20151009, end: 20151010
  3. TYLENOL [Concomitant]
     Active Substance: ACETAMINOPHEN
  4. BENZONATATE. [Concomitant]
     Active Substance: BENZONATATE
  5. CLARITHROMYCIN. [Concomitant]
     Active Substance: CLARITHROMYCIN

REACTIONS (2)
  - Arthralgia [None]
  - Swelling [None]

NARRATIVE: CASE EVENT DATE: 20151010
